FAERS Safety Report 5083369-7 (Version None)
Quarter: 2006Q3

REPORT INFORMATION
  Report Type: 
  Country: None (occurrence: None)
  Receive Date: 20060816
  Receipt Date: 20060802
  Transmission Date: 20061208
  Serious: Yes (Hospitalization)
  Sender: FDA-Public Use
  Company Number: 2006PV017740

PATIENT
  Sex: Male

DRUGS (1)
  1. BYETTA INJECTION (0.25 MG/ ML) [Suspect]
     Indication: DRUG USE FOR UNKNOWN INDICATION
     Dosage: SC
     Route: 058

REACTIONS (2)
  - FALL [None]
  - LOWER LIMB FRACTURE [None]
